FAERS Safety Report 25465860 (Version 3)
Quarter: 2025Q3

REPORT INFORMATION
  Report Type: Spontaneous
  Country: EG (occurrence: EG)
  Receive Date: 20250623
  Receipt Date: 20250812
  Transmission Date: 20251020
  Serious: Yes (Hospitalization)
  Sender: NOVO NORDISK
  Company Number: EG-NOVOPROD-1447649

PATIENT
  Age: 1 Year
  Sex: Male
  Weight: 10.6 kg

DRUGS (10)
  1. TRESIBA [Suspect]
     Active Substance: INSULIN DEGLUDEC
  2. TRESIBA [Suspect]
     Active Substance: INSULIN DEGLUDEC
  3. TRESIBA [Suspect]
     Active Substance: INSULIN DEGLUDEC
     Indication: Product used for unknown indication
     Dates: start: 20250528
  4. HUMALOG [Suspect]
     Active Substance: INSULIN LISPRO
  5. HUMALOG [Suspect]
     Active Substance: INSULIN LISPRO
     Indication: Product used for unknown indication
     Dates: start: 20250528
  6. NOVORAPID [Suspect]
     Active Substance: INSULIN ASPART
  7. NOVORAPID [Suspect]
     Active Substance: INSULIN ASPART
  8. NOVORAPID [Suspect]
     Active Substance: INSULIN ASPART
     Indication: Product used for unknown indication
     Dates: start: 20250528
  9. NOVORAPID [Suspect]
     Active Substance: INSULIN ASPART
  10. NOVORAPID [Suspect]
     Active Substance: INSULIN ASPART

REACTIONS (2)
  - Hypoglycaemia [Not Recovered/Not Resolved]
  - Incorrect dose administered [Not Recovered/Not Resolved]

NARRATIVE: CASE EVENT DATE: 20250528
